FAERS Safety Report 15402842 (Version 2)
Quarter: 2019Q1

REPORT INFORMATION
  Report Type: Report from Study
  Country: CA (occurrence: CA)
  Receive Date: 20180919
  Receipt Date: 20190321
  Transmission Date: 20190417
  Serious: Yes (Hospitalization, Other)
  Sender: FDA-Public Use
  Company Number: CA-PFIZER INC-2018372367

PATIENT
  Age: 69 Year
  Sex: Male
  Weight: 90.7 kg

DRUGS (29)
  1. COUMADIN [Concomitant]
     Active Substance: WARFARIN SODIUM
     Dosage: UNK
  2. RITUXAN [Suspect]
     Active Substance: RITUXIMAB
     Indication: GRANULOMATOSIS WITH POLYANGIITIS
     Dosage: 1000 MG, DAY1 AND DAY 15
     Route: 042
     Dates: start: 20110907
  3. RITUXAN [Suspect]
     Active Substance: RITUXIMAB
     Dosage: UNK
     Dates: start: 20150615, end: 20150615
  4. LOTEMAX [Concomitant]
     Active Substance: LOTEPREDNOL ETABONATE
     Indication: INFLAMMATION
     Dosage: UNK
  5. METOPROLOL. [Concomitant]
     Active Substance: METOPROLOL
     Dosage: UNK
  6. PRAVACHOL [Concomitant]
     Active Substance: PRAVASTATIN SODIUM
     Dosage: UNK
  7. FLOMAX [Concomitant]
     Active Substance: TAMSULOSIN HYDROCHLORIDE
     Dosage: UNK
  8. NOVOLIN [Concomitant]
     Active Substance: INSULIN HUMAN
     Dosage: UNK
  9. NORVASC [Concomitant]
     Active Substance: AMLODIPINE BESYLATE
     Dosage: UNK
  10. DIPHENHYDRAMINE HYDROCHLORIDE. [Concomitant]
     Active Substance: DIPHENHYDRAMINE HYDROCHLORIDE
     Indication: PREMEDICATION
     Dosage: 50 MG, UNK
     Route: 048
  11. ISOPHANE INSULIN [Concomitant]
     Active Substance: INSULIN NOS
     Dosage: UNK
  12. RITUXAN [Suspect]
     Active Substance: RITUXIMAB
     Indication: VASCULITIS
     Dosage: 1000 MG, SINGLE
     Route: 042
     Dates: start: 20130513
  13. RITUXAN [Suspect]
     Active Substance: RITUXIMAB
     Dosage: 1000 MG, SINGLE
     Route: 042
     Dates: start: 20131210
  14. HYDROCHLOROTHIAZIDE. [Concomitant]
     Active Substance: HYDROCHLOROTHIAZIDE
     Dosage: UNK
  15. ZANTAC [Concomitant]
     Active Substance: RANITIDINE HYDROCHLORIDE
     Dosage: UNK
  16. SULFAMETHOXAZOLE/TRIMETHOPRIM [Concomitant]
  17. RITUXAN [Suspect]
     Active Substance: RITUXIMAB
     Dosage: UNK
     Dates: start: 20151207, end: 20151207
  18. RITUXAN [Suspect]
     Active Substance: RITUXIMAB
     Dosage: UNK
     Dates: start: 20160620
  19. RITUXAN [Suspect]
     Active Substance: RITUXIMAB
     Dosage: UNK
     Dates: start: 20170116
  20. VITAMIN D [Concomitant]
     Active Substance: CHOLECALCIFEROL
  21. METHYLPREDNISOLONE SODIUM SUCCINATE. [Suspect]
     Active Substance: METHYLPREDNISOLONE SODIUM SUCCINATE
     Indication: PREMEDICATION
     Dosage: 100 MG, UNK
     Route: 042
     Dates: start: 20110907
  22. RITUXAN [Suspect]
     Active Substance: RITUXIMAB
     Indication: GRANULOMATOSIS WITH POLYANGIITIS
     Dosage: 1000 MG, SINGLE
     Route: 042
     Dates: start: 20121126
  23. RITUXAN [Suspect]
     Active Substance: RITUXIMAB
     Dosage: UNK
  24. ACETAMINOPHEN. [Concomitant]
     Active Substance: ACETAMINOPHEN
     Indication: PREMEDICATION
     Dosage: 1000 MG, UNK
     Route: 048
  25. PREDNISONE. [Concomitant]
     Active Substance: PREDNISONE
     Dosage: EYE DROPS
  26. SEPTRA [Concomitant]
     Active Substance: SULFAMETHOXAZOLE\TRIMETHOPRIM
     Dosage: UNK (3 EVERY 1  WEEK)
     Route: 065
  27. PREVACID [Concomitant]
     Active Substance: LANSOPRAZOLE
     Dosage: UNK
  28. FML [Concomitant]
     Active Substance: FLUOROMETHOLONE
     Dosage: UNK
  29. INSULIN [Concomitant]
     Active Substance: INSULIN NOS

REACTIONS (34)
  - Corneal disorder [Unknown]
  - Osteoarthritis [Unknown]
  - Hypertension [Not Recovered/Not Resolved]
  - Skin laceration [Unknown]
  - Angina pectoris [Unknown]
  - Wrist fracture [Unknown]
  - Blood glucose increased [Unknown]
  - Bladder cyst [Unknown]
  - Blood urine present [Unknown]
  - Gingivitis [Unknown]
  - Neutropenia [Recovered/Resolved]
  - Coronary artery stenosis [Unknown]
  - Pneumonia [Unknown]
  - Hypertension [Unknown]
  - Arthropod bite [Unknown]
  - Bronchitis [Unknown]
  - Rotator cuff syndrome [Unknown]
  - Prostatitis [Recovering/Resolving]
  - Oxygen saturation decreased [Unknown]
  - Intervertebral disc degeneration [Not Recovered/Not Resolved]
  - Infusion related reaction [Not Recovered/Not Resolved]
  - Oxygen saturation decreased [Not Recovered/Not Resolved]
  - Corneal dystrophy [Not Recovered/Not Resolved]
  - Visual impairment [Not Recovered/Not Resolved]
  - Fall [Unknown]
  - Contusion [Unknown]
  - Nasopharyngitis [Unknown]
  - Pollakiuria [Unknown]
  - Condition aggravated [Not Recovered/Not Resolved]
  - Facial bones fracture [Recovered/Resolved]
  - Disease recurrence [Recovering/Resolving]
  - White blood cell count decreased [Unknown]
  - Rash [Recovered/Resolved]
  - Blood pressure systolic increased [Unknown]

NARRATIVE: CASE EVENT DATE: 201211
